FAERS Safety Report 5532187-1 (Version None)
Quarter: 2007Q4

REPORT INFORMATION
  Report Type: 
  Country: None (occurrence: None)
  Receive Date: 20071203
  Receipt Date: 20071121
  Transmission Date: 20080405
  Serious: Yes (Other)
  Sender: FDA-Public Use
  Company Number: US-AVENTIS-200718212US

PATIENT
  Age: 3 Month
  Sex: Male

DRUGS (1)
  1. LOVENOX [Suspect]
     Dosage: DOSE: 1 MG/KG
     Route: 051
     Dates: start: 20071010

REACTIONS (3)
  - ALANINE AMINOTRANSFERASE INCREASED [None]
  - ASPARTATE AMINOTRANSFERASE INCREASED [None]
  - HEPATOCELLULAR DAMAGE [None]
